FAERS Safety Report 12478328 (Version 1)
Quarter: 2016Q2

REPORT INFORMATION
  Report Type: Spontaneous
  Country: US (occurrence: US)
  Receive Date: 20160617
  Receipt Date: 20160617
  Transmission Date: 20160815
  Serious: Yes (Other)
  Sender: FDA-Public Use
  Company Number: US-AMGEN-USASP2016071343

PATIENT
  Age: 65 Year
  Sex: Female
  Weight: 58.5 kg

DRUGS (1)
  1. PROLIA [Suspect]
     Active Substance: DENOSUMAB
     Indication: OSTEOPOROSIS
     Dosage: 1 ML, Q6MO
     Route: 058
     Dates: start: 20140205, end: 20151113

REACTIONS (8)
  - Musculoskeletal pain [Recovered/Resolved]
  - Myalgia [Recovered/Resolved]
  - Walking aid user [Not Recovered/Not Resolved]
  - Gait disturbance [Recovered/Resolved]
  - Asthenia [Not Recovered/Not Resolved]
  - Pain [Not Recovered/Not Resolved]
  - Constipation [Not Recovered/Not Resolved]
  - Joint range of motion decreased [Recovered/Resolved]

NARRATIVE: CASE EVENT DATE: 201511
